FAERS Safety Report 6102505-4 (Version None)
Quarter: 2009Q1

REPORT INFORMATION
  Report Type: 
  Country: None (occurrence: None)
  Receive Date: 20090304
  Receipt Date: 20080915
  Transmission Date: 20090719
  Serious: Yes (Hospitalization, Other)
  Sender: FDA-Public Use
  Company Number: A0714967A

PATIENT
  Age: 46 Year
  Sex: Male
  Weight: 100 kg

DRUGS (25)
  1. REQUIP [Suspect]
     Indication: PARKINSON'S DISEASE
     Dosage: 5MG SIX TIMES PER DAY
     Route: 048
     Dates: start: 20020103, end: 20070921
  2. COMPLAN [Concomitant]
  3. LODOSYN [Concomitant]
  4. UNSPECIFIED MEDICATION [Concomitant]
  5. CARBIDOPA AND LEVODOPA [Concomitant]
  6. ZANTAC [Concomitant]
  7. RELAFEN [Concomitant]
  8. SELEGILINE [Concomitant]
     Dates: start: 20060701, end: 20061214
  9. AMANTADINE HCL [Concomitant]
     Dosage: 100MG AS REQUIRED
  10. ALPRAZOLAM [Concomitant]
  11. ADVIL [Concomitant]
     Dates: end: 20050101
  12. TUMS [Concomitant]
     Route: 048
  13. UNKNOWN [Concomitant]
  14. MOBIC [Concomitant]
  15. VITAMIN B-12 [Concomitant]
  16. MIRAPEX [Concomitant]
  17. AZILECT [Concomitant]
  18. NEUPRO [Concomitant]
     Route: 062
  19. ASPIRIN [Concomitant]
  20. AMBIEN [Concomitant]
  21. ATIVAN [Concomitant]
  22. KLONOPIN [Concomitant]
  23. ARTHROTEC [Concomitant]
  24. UNKNOWN [Concomitant]
  25. PLAVIX [Concomitant]

REACTIONS (1)
  - GAMBLING [None]
